FAERS Safety Report 8300217-X (Version None)
Quarter: 2012Q2

REPORT INFORMATION
  Report Type: 
  Country: None (occurrence: None)
  Receive Date: 20120417
  Receipt Date: 20120403
  Transmission Date: 20120825
  Serious: Yes (Life-Threatening)
  Sender: FDA-Public Use
  Company Number: DSJ-2012-06345

PATIENT
  Age: 80 Year
  Sex: Female
  Weight: 48 kg

DRUGS (7)
  1. DOGMATYL (SULPIRIDE) (SULPIRIDE) [Suspect]
     Dosage: UNKNOWN (3 IN 1 D), PER ORAL
     Route: 048
  2. CALBLOCK (AZELNIDIPINE) (TABLET) (AZELNIDIPINE) [Suspect]
     Indication: HYPERTENSION
     Dosage: 16 MG (16 MG, 1 IN 1 D), PER ORAL
     Route: 048
  3. CARVEDILOL [Suspect]
     Indication: HYPERTENSION
     Dosage: 10 MG (10 MG, 1 IN 1 D), PER ORAL
     Route: 048
  4. OLMESARTAN MEDOXOMIL [Suspect]
     Indication: HYPERTENSION
     Dosage: 40 MG (40 MG, 1 IN 1 D), PER ORAL
     Route: 048
  5. ACETYLSALICYLIC ACID SRT [Suspect]
     Dosage: 100 MG (100 MG, 1 IN 1 D), PER ORAL
     Route: 048
  6. PROPAFENONE HYDROCHLORIDE [Suspect]
     Dosage: 450 MG (150 MG, 3 IN 1 D), PER ORAL
     Route: 048
  7. DEPAS (ETIZOLAM) (TABLET) (ETIZOLAM) [Suspect]
     Dosage: 1.5 MG (0.5 MG, 3 IN 1 D), PER ORAL
     Route: 048

REACTIONS (7)
  - BLOOD PRESSURE ABNORMAL [None]
  - COMA [None]
  - OVERDOSE [None]
  - HAEMORRHAGE [None]
  - CARDIO-RESPIRATORY ARREST [None]
  - INCORRECT DOSE ADMINISTERED [None]
  - HEART RATE DECREASED [None]
